FAERS Safety Report 10616943 (Version 2)
Quarter: 2015Q1

REPORT INFORMATION
  Report Type: Spontaneous
  Country: US (occurrence: US)
  Receive Date: 20141201
  Receipt Date: 20150106
  Transmission Date: 20150720
  Serious: No
  Sender: FDA-Public Use
  Company Number: US-GLAXOSMITHKLINE-US2014GSK025939

PATIENT
  Sex: Female

DRUGS (16)
  1. AVELOX [Concomitant]
     Active Substance: MOXIFLOXACIN HYDROCHLORIDE
  2. SINGULAIR [Concomitant]
     Active Substance: MONTELUKAST SODIUM
  3. VICODIN [Concomitant]
     Active Substance: ACETAMINOPHEN\HYDROCODONE BITARTRATE
  4. LOTENSIN [Concomitant]
     Active Substance: BENAZEPRIL HYDROCHLORIDE
  5. DIOVAN [Concomitant]
     Active Substance: VALSARTAN
  6. ERYTHROMYCIN. [Concomitant]
     Active Substance: ERYTHROMYCIN
  7. TIAZAC [Concomitant]
     Active Substance: DILTIAZEM HYDROCHLORIDE
  8. ADVAIR DISKUS [Suspect]
     Active Substance: FLUTICASONE PROPIONATE\SALMETEROL XINAFOATE
     Indication: PRODUCT USED FOR UNKNOWN INDICATION
     Dosage: 1 PUFF(S), QD
     Route: 055
     Dates: start: 20101104
  9. TRAMADOL [Concomitant]
     Active Substance: TRAMADOL
  10. PROPRANOLOL [Concomitant]
     Active Substance: PROPRANOLOL\PROPRANOLOL HYDROCHLORIDE
  11. LEVOTHYROXINE [Concomitant]
     Active Substance: LEVOTHYROXINE
  12. LUNESTA [Concomitant]
     Active Substance: ESZOPICLONE
  13. NORVASC [Concomitant]
     Active Substance: AMLODIPINE BESYLATE
  14. CORALAN [Concomitant]
  15. ASPIRIN. [Concomitant]
     Active Substance: ASPIRIN
  16. LOSARTAN [Concomitant]
     Active Substance: LOSARTAN

REACTIONS (2)
  - Pulmonary pain [Unknown]
  - Product quality issue [Unknown]
